FAERS Safety Report 12194086 (Version 3)
Quarter: 2016Q4

REPORT INFORMATION
  Report Type: Spontaneous
  Country: DE (occurrence: DE)
  Receive Date: 20160321
  Receipt Date: 20161202
  Transmission Date: 20170207
  Serious: Yes (Hospitalization, Other)
  Sender: FDA-Public Use
  Company Number: DE-009507513-1603DEU007072

PATIENT
  Age: 38 Year
  Sex: Female

DRUGS (1)
  1. NUVARING [Suspect]
     Active Substance: ETHINYL ESTRADIOL\ETONOGESTREL
     Indication: CONTRACEPTION
     Dosage: 1 RING
     Route: 067
     Dates: start: 20160112, end: 2016

REACTIONS (8)
  - Clonic convulsion [Recovered/Resolved]
  - Fatigue [Recovering/Resolving]
  - Monoparesis [Recovered/Resolved]
  - Cerebral infarction [Recovered/Resolved]
  - Intracranial venous sinus thrombosis [Recovered/Resolved]
  - Oedema [Recovered/Resolved]
  - Haemorrhage [Recovered/Resolved]
  - Disturbance in attention [Recovering/Resolving]

NARRATIVE: CASE EVENT DATE: 20160126
